FAERS Safety Report 25186595 (Version 2)
Quarter: 2025Q2

REPORT INFORMATION
  Report Type: Spontaneous
  Country: US (occurrence: US)
  Receive Date: 20250411
  Receipt Date: 20250528
  Transmission Date: 20250717
  Serious: Yes (Death, Other)
  Sender: ALEXION PHARMACEUTICALS
  Company Number: US-AstraZeneca-CH-00846013A

PATIENT
  Age: 80 Year

DRUGS (2)
  1. ULTOMIRIS [Suspect]
     Active Substance: RAVULIZUMAB-CWVZ
     Route: 065
  2. SOLIRIS [Suspect]
     Active Substance: ECULIZUMAB
     Route: 065

REACTIONS (1)
  - Death [Fatal]
